FAERS Safety Report 8139261-4 (Version None)
Quarter: 2012Q1

REPORT INFORMATION
  Report Type: 
  Country: None (occurrence: None)
  Receive Date: 20120215
  Receipt Date: 20120206
  Transmission Date: 20120608
  Serious: Yes (Other)
  Sender: FDA-Public Use
  Company Number: CA-B.I. PHARMACEUTICALS,INC./RIDGEFIELD-2012-CN-00188CN

PATIENT
  Age: 41 Year
  Sex: Male

DRUGS (23)
  1. TIPRANAVIR + RITONAVIR CO-ADMIN [Suspect]
     Route: 065
  2. CRIXIVAN [Concomitant]
     Route: 065
  3. GRANULOCYTE COLONY STIMULATING FACTOR (G-CSF) [Concomitant]
     Route: 065
  4. PREDNISONE TAB [Concomitant]
     Route: 065
  5. ZIDOVUDINE [Suspect]
     Route: 065
  6. AGENERASE [Concomitant]
     Route: 065
  7. FLUCONAZOLE [Concomitant]
     Route: 065
  8. TRIMETHOPRIM + SULFAMETHOXAZOLE [Concomitant]
     Route: 065
  9. RITONAVIR [Suspect]
     Route: 065
  10. HIVID [Concomitant]
     Route: 065
  11. SUSTIVA [Concomitant]
     Route: 065
  12. VIREAD [Suspect]
     Route: 065
  13. DOXORUBICIN HCL [Concomitant]
     Route: 065
  14. VINCRISTINE SULFATE [Concomitant]
     Route: 065
  15. KALETRA [Suspect]
     Route: 065
  16. LAMIVUDINE [Suspect]
     Route: 065
  17. VIDEX [Concomitant]
     Route: 065
  18. LAMIVUDINE [Suspect]
     Route: 065
  19. ABACAVIR [Concomitant]
     Route: 065
  20. ZIDOVUDINE [Suspect]
     Route: 065
  21. CYCLOPHOSPHAMIDE [Concomitant]
     Route: 065
  22. VIRACEPT [Concomitant]
     Route: 065
  23. ZERIT [Concomitant]
     Route: 065

REACTIONS (4)
  - VIRAL LOAD INCREASED [None]
  - VIROLOGIC FAILURE [None]
  - BLOOD CHOLESTEROL INCREASED [None]
  - BLOOD TRIGLYCERIDES INCREASED [None]
